FAERS Safety Report 12241547 (Version 1)
Quarter: 2016Q2

REPORT INFORMATION
  Report Type: Other
  Country: US (occurrence: US)
  Receive Date: 20160406
  Receipt Date: 20160406
  Transmission Date: 20160815
  Serious: Yes (Hospitalization)
  Sender: FDA-Public Use
  Company Number: US-UNITED THERAPEUTICS-UNT-2016-005281

PATIENT
  Age: 77 Year
  Sex: Female
  Weight: 66.67 kg

DRUGS (2)
  1. COUMADIN [Concomitant]
     Active Substance: WARFARIN SODIUM
     Indication: PRODUCT USED FOR UNKNOWN INDICATION
  2. TYVASO [Suspect]
     Active Substance: TREPROSTINIL
     Indication: PULMONARY HYPERTENSION
     Dosage: 18-54 MICROGRAMS, QID
     Dates: start: 20160318

REACTIONS (4)
  - Oxygen saturation decreased [Unknown]
  - Oropharyngeal pain [Unknown]
  - Hypertension [Unknown]
  - Glossodynia [Unknown]

NARRATIVE: CASE EVENT DATE: 20160325
